FAERS Safety Report 16990754 (Version 2)
Quarter: 2019Q4

REPORT INFORMATION
  Report Type: Spontaneous
  Country: US (occurrence: US)
  Receive Date: 20191104
  Receipt Date: 20191114
  Transmission Date: 20200122
  Serious: Yes (Hospitalization)
  Sender: FDA-Public Use
  Company Number: US-INCYTE CORPORATION-2019IN010659

PATIENT

DRUGS (2)
  1. JAKAFI [Suspect]
     Active Substance: RUXOLITINIB
     Indication: POLYCYTHAEMIA VERA
     Dosage: 10 MILLIGRAM, BID
     Route: 048
     Dates: start: 20190622
  2. JAKAFI [Suspect]
     Active Substance: RUXOLITINIB
     Indication: JANUS KINASE 2 MUTATION

REACTIONS (1)
  - Skin ulcer [Recovering/Resolving]
